FAERS Safety Report 12380778 (Version 3)
Quarter: 2016Q3

REPORT INFORMATION
  Report Type: Spontaneous
  Country: US (occurrence: US)
  Receive Date: 20160518
  Receipt Date: 20160909
  Transmission Date: 20161109
  Serious: Yes (Other)
  Sender: FDA-Public Use
  Company Number: US-009507513-1605USA007694

PATIENT
  Age: 52 Year
  Sex: Female
  Weight: 63.49 kg

DRUGS (6)
  1. ZEBETA [Concomitant]
     Active Substance: BISOPROLOL FUMARATE
  2. VALTREX [Concomitant]
     Active Substance: VALACYCLOVIR HYDROCHLORIDE
  3. LAMICTAL [Concomitant]
     Active Substance: LAMOTRIGINE
  4. BELSOMRA [Suspect]
     Active Substance: SUVOREXANT
     Indication: SLEEP DISORDER
     Dosage: TAKE ONE TABLET AT BEDTIME
     Route: 048
     Dates: start: 20150814, end: 20150814
  5. CENTRUM SILVER ADULTS 50 PLUS [Concomitant]
  6. LEXAPRO [Concomitant]
     Active Substance: ESCITALOPRAM OXALATE

REACTIONS (11)
  - Movement disorder [Not Recovered/Not Resolved]
  - Agitation [Not Recovered/Not Resolved]
  - Moaning [Not Recovered/Not Resolved]
  - Sleep paralysis [Unknown]
  - Dysarthria [Not Recovered/Not Resolved]
  - Abnormal dreams [Not Recovered/Not Resolved]
  - Feeling abnormal [Not Recovered/Not Resolved]
  - Head discomfort [Not Recovered/Not Resolved]
  - Impatience [Not Recovered/Not Resolved]
  - Insomnia [Not Recovered/Not Resolved]
  - Fatigue [Not Recovered/Not Resolved]

NARRATIVE: CASE EVENT DATE: 20150814
